FAERS Safety Report 7480909-5 (Version None)
Quarter: 2011Q2

REPORT INFORMATION
  Report Type: 
  Country: None (occurrence: None)
  Receive Date: 20110512
  Receipt Date: 20110512
  Transmission Date: 20111010
  Serious: Yes (Disabling, Other)
  Sender: FDA-Public Use
  Company Number: None

PATIENT
  Sex: Male
  Weight: 90.7194 kg

DRUGS (10)
  1. TRAZODONE HCL [Concomitant]
  2. FLUOXETINE [Suspect]
     Indication: SEASONAL AFFECTIVE DISORDER
     Dosage: 40 MG 1X DAY ORAL (BRIEFLY 1998 FALL + WINTER)
     Route: 048
  3. RISPERDIAL [Concomitant]
  4. MELLARIL [Concomitant]
  5. GEODON [Concomitant]
  6. DESIPRAMIDE HCL [Concomitant]
  7. FLUOXETINE [Suspect]
     Indication: DEPRESSION SUICIDAL
     Dosage: 20 MG 1X DAY ORAL
     Route: 048
     Dates: start: 19930619, end: 20030101
  8. HALDOL [Concomitant]
  9. ARTANE [Concomitant]
  10. DIPHENHYDRAMINE HCL [Concomitant]

REACTIONS (9)
  - NERVOUS SYSTEM DISORDER [None]
  - PREMATURE EJACULATION [None]
  - SUICIDE ATTEMPT [None]
  - LIBIDO DISORDER [None]
  - ERECTILE DYSFUNCTION [None]
  - INSOMNIA [None]
  - ANXIETY [None]
  - FEELING ABNORMAL [None]
  - DRUG INEFFECTIVE [None]
